FAERS Safety Report 7499380-2 (Version None)
Quarter: 2011Q2

REPORT INFORMATION
  Report Type: 
  Country: None (occurrence: None)
  Receive Date: 20110516
  Receipt Date: 20110503
  Transmission Date: 20111010
  Serious: Yes (Death)
  Sender: FDA-Public Use
  Company Number: UTC-006832

PATIENT
  Age: 62 Year
  Sex: Female
  Weight: 90.45 kg

DRUGS (3)
  1. REVATIO [Concomitant]
  2. METORPROLOL (METOPROLOL) [Concomitant]
  3. TYVASO [Suspect]
     Indication: PULMONARY ARTERIAL HYPERTENSION
     Dosage: 120 MCG (30 MCG, 4 IN 1 D) INHALATION
     Route: 055
     Dates: start: 20110408

REACTIONS (1)
  - DEATH [None]
